FAERS Safety Report 8881568 (Version 4)
Quarter: 2013Q2

REPORT INFORMATION
  Report Type: Spontaneous
  Country: US (occurrence: US)
  Receive Date: 20121102
  Receipt Date: 20130603
  Transmission Date: 20140414
  Serious: Yes (Hospitalization, Disabling, Other)
  Sender: FDA-Public Use
  Company Number: US-009507513-1210USA010355

PATIENT
  Sex: Female
  Weight: 68.27 kg

DRUGS (5)
  1. FOSAMAX [Suspect]
     Indication: OSTEOPENIA
     Dosage: 70 MG, UNK
     Route: 048
     Dates: end: 2008
  2. FOSAMAX [Suspect]
     Indication: OSTEOPOROSIS
     Dosage: 10 MG, QD
     Route: 048
  3. ALENDRONATE SODIUM [Suspect]
     Indication: OSTEOPENIA
     Dosage: 70 MG, QW
     Route: 048
     Dates: start: 2008, end: 2011
  4. ALENDRONATE SODIUM [Suspect]
     Indication: OSTEOPOROSIS
  5. ACTONEL [Concomitant]
     Indication: OSTEOPENIA
     Dosage: 35 MG, UNK
     Dates: start: 2002, end: 2003

REACTIONS (36)
  - Femur fracture [Unknown]
  - Low turnover osteopathy [Not Recovered/Not Resolved]
  - Femur fracture [Unknown]
  - Intramedullary rod insertion [Unknown]
  - Open reduction of fracture [Unknown]
  - Haemorrhagic anaemia [Recovering/Resolving]
  - Cerebrovascular accident [Unknown]
  - Convulsion [Unknown]
  - Arthroscopic surgery [Unknown]
  - Knee operation [Unknown]
  - Heart rate decreased [Unknown]
  - Femur fracture [Not Recovered/Not Resolved]
  - Adverse event [Unknown]
  - Gait disturbance [Unknown]
  - Fatigue [Unknown]
  - Hypertension [Unknown]
  - Hypertonic bladder [Unknown]
  - Hypercholesterolaemia [Unknown]
  - Pain [Unknown]
  - Infection [Unknown]
  - Cough [Unknown]
  - Inflammation [Unknown]
  - Anxiety [Unknown]
  - Muscle disorder [Unknown]
  - Syncope [Unknown]
  - Hypotension [Unknown]
  - Hypokalaemia [Unknown]
  - Chills [Unknown]
  - Transient ischaemic attack [Unknown]
  - Hysterectomy [Unknown]
  - Mitral valve prolapse [Unknown]
  - Mitral valve incompetence [Unknown]
  - Post procedural haemorrhage [Recovering/Resolving]
  - Breast cyst [Unknown]
  - Uterine malposition [Unknown]
  - Uterine leiomyoma [Unknown]
